FAERS Safety Report 9016888 (Version 1)
Quarter: 2013Q1

REPORT INFORMATION
  Report Type: Spontaneous
  Country: US (occurrence: None)
  Receive Date: 20130116
  Receipt Date: 20130116
  Transmission Date: 20140127
  Serious: No
  Sender: FDA-Public Use
  Company Number: US-HORIZON-DUE-0010-2012

PATIENT
  Sex: Female
  Weight: 73 kg

DRUGS (2)
  1. DUEXIS [Suspect]
     Indication: PAIN
     Dosage: JUL-2012 TO 25-JUL-2012,?1DF DAILY AS NECESSARY.?FROM 26 TO 29
     Dates: start: 201207, end: 20120725
  2. SYNTHROID [Concomitant]

REACTIONS (3)
  - Weight increased [None]
  - Abdominal distension [None]
  - Neuralgia [None]
